FAERS Safety Report 6371484-7 (Version None)
Quarter: 2009Q3

REPORT INFORMATION
  Report Type: 
  Country: None (occurrence: None)
  Receive Date: 20090923
  Receipt Date: 20070802
  Transmission Date: 20100115
  Serious: Yes (Other)
  Sender: FDA-Public Use
  Company Number: US-ASTRAZENECA-2007UW09713

PATIENT
  Age: 43 Year
  Sex: Female
  Weight: 86.2 kg

DRUGS (12)
  1. SEROQUEL [Suspect]
     Indication: BIPOLAR DISORDER
     Dosage: 50-500 MG EVERY DAY
     Route: 048
     Dates: start: 20050401, end: 20070101
  2. SEROQUEL [Suspect]
     Indication: DEPRESSION
     Dosage: 50-500 MG EVERY DAY
     Route: 048
     Dates: start: 20050401, end: 20070101
  3. SEROQUEL [Suspect]
     Dosage: 25-400 MG
     Route: 048
     Dates: start: 20050912
  4. SEROQUEL [Suspect]
     Dosage: 25-400 MG
     Route: 048
     Dates: start: 20050912
  5. RISPERDAL [Suspect]
  6. LAMICTAL [Concomitant]
  7. BUSPAR [Concomitant]
  8. DICYCLOMINE [Concomitant]
  9. PHENERGAN [Concomitant]
  10. VISTARIL [Concomitant]
  11. ATIVAN [Concomitant]
  12. HALDOL [Concomitant]

REACTIONS (1)
  - PANCREATITIS ACUTE [None]
